FAERS Safety Report 8339469 (Version 6)
Quarter: 2015Q2

REPORT INFORMATION
  Report Type: Spontaneous
  Country: CA (occurrence: CA)
  Receive Date: 20120117
  Receipt Date: 20150406
  Transmission Date: 20150821
  Serious: Yes (Other)
  Sender: FDA-Public Use
  Company Number: CA-GLAXOSMITHKLINE-A0949765A

PATIENT
  Age: 57 Year
  Sex: Female

DRUGS (12)
  1. ADVAIR DISKUS [Suspect]
     Active Substance: FLUTICASONE PROPIONATE\SALMETEROL XINAFOATE
     Indication: ASTHMA
     Dosage: 1 PUFF(S), BID
     Route: 055
     Dates: start: 201107
  2. NORVASC [Concomitant]
     Active Substance: AMLODIPINE BESYLATE
     Indication: PRODUCT USED FOR UNKNOWN INDICATION
  3. COVERSYL PLUS [Concomitant]
     Active Substance: INDAPAMIDE\PERINDOPRIL
     Indication: PRODUCT USED FOR UNKNOWN INDICATION
  4. VITAMIN B12 [Concomitant]
     Active Substance: CYANOCOBALAMIN
     Indication: PRODUCT USED FOR UNKNOWN INDICATION
  5. ADVAIR DISKUS [Suspect]
     Active Substance: FLUTICASONE PROPIONATE\SALMETEROL XINAFOATE
     Dosage: 1 PUFF(S), BID , 500
     Route: 055
     Dates: start: 2010
  6. DIURETICS [Concomitant]
     Active Substance: UNSPECIFIED INGREDIENT
     Indication: PRODUCT USED FOR UNKNOWN INDICATION
  7. VENTOLIN [Suspect]
     Active Substance: ALBUTEROL SULFATE
     Indication: PRODUCT USED FOR UNKNOWN INDICATION
     Route: 065
  8. GARLIC. [Concomitant]
     Active Substance: GARLIC
     Indication: PRODUCT USED FOR UNKNOWN INDICATION
  9. METHACHOLINE. [Suspect]
     Active Substance: METHACHOLINE
     Indication: PULMONARY FUNCTION CHALLENGE TEST
     Route: 065
     Dates: start: 20120106
  10. SYNTHROID [Concomitant]
     Active Substance: LEVOTHYROXINE SODIUM
     Indication: PRODUCT USED FOR UNKNOWN INDICATION
  11. BLOOD PRESSURE MEDICATION [Concomitant]
     Active Substance: UNSPECIFIED INGREDIENT
     Indication: PRODUCT USED FOR UNKNOWN INDICATION
  12. ADVAIR DISKUS [Suspect]
     Active Substance: FLUTICASONE PROPIONATE\SALMETEROL XINAFOATE
     Dosage: 1 PUFF(S), BID, 500 MCG
     Route: 055
     Dates: start: 201001

REACTIONS (26)
  - Lower respiratory tract infection [Unknown]
  - Respiratory distress [Unknown]
  - Pain [Unknown]
  - Drug ineffective [Unknown]
  - Dementia [Unknown]
  - Nasopharyngitis [Recovered/Resolved]
  - Abnormal dreams [Unknown]
  - Tremor [Unknown]
  - Palpitations [Unknown]
  - Wheezing [Unknown]
  - Muscle spasms [Not Recovered/Not Resolved]
  - Discomfort [Unknown]
  - Cough [Unknown]
  - Limb injury [Not Recovered/Not Resolved]
  - Nonspecific reaction [Unknown]
  - Influenza [Recovered/Resolved]
  - Pain in extremity [Not Recovered/Not Resolved]
  - Productive cough [Unknown]
  - Dyspnoea [Unknown]
  - Heart rate increased [Unknown]
  - Respiratory rate increased [Unknown]
  - Joint lock [Not Recovered/Not Resolved]
  - Asthma [Recovered/Resolved]
  - Musculoskeletal discomfort [Unknown]
  - Speech disorder [Unknown]
  - Arrhythmia [Unknown]

NARRATIVE: CASE EVENT DATE: 20111219
